FAERS Safety Report 5307185-3 (Version None)
Quarter: 2007Q2

REPORT INFORMATION
  Report Type: 
  Country: None (occurrence: None)
  Receive Date: 20070425
  Receipt Date: 20070117
  Transmission Date: 20071010
  Serious: No
  Sender: FDA-Public Use
  Company Number: US-AMGEN-US207175

PATIENT
  Sex: Male
  Weight: 104.9 kg

DRUGS (7)
  1. VECTIBIX [Suspect]
     Indication: COLORECTAL CANCER
     Route: 042
     Dates: start: 20070103
  2. PERCOCET [Concomitant]
     Dates: start: 20060508
  3. COUMADIN [Concomitant]
  4. LOMOTIL [Concomitant]
  5. FERROUS SULFATE [Concomitant]
  6. COMPAZINE [Concomitant]
  7. DILAUDID [Concomitant]

REACTIONS (5)
  - CONJUNCTIVITIS [None]
  - DERMATITIS ACNEIFORM [None]
  - PAIN [None]
  - SCLERAL DISCOLOURATION [None]
  - STAPHYLOCOCCAL INFECTION [None]
